FAERS Safety Report 7652854-3 (Version None)
Quarter: 2011Q3

REPORT INFORMATION
  Report Type: 
  Country: None (occurrence: None)
  Receive Date: 20110803
  Receipt Date: 20110726
  Transmission Date: 20111222
  Serious: No
  Sender: FDA-Public Use
  Company Number: US-JNJFOC-20110711334

PATIENT
  Sex: Female
  Weight: 100.25 kg

DRUGS (2)
  1. INVEGA SUSTENNA [Suspect]
     Indication: SCHIZOAFFECTIVE DISORDER
     Route: 030
     Dates: start: 20101001, end: 20110301
  2. INVEGA SUSTENNA [Suspect]
     Route: 030
     Dates: start: 20110501

REACTIONS (1)
  - DRUG EFFECT DECREASED [None]
